FAERS Safety Report 4744352-1 (Version None)
Quarter: 2005Q3

REPORT INFORMATION
  Report Type: 
  Country: None (occurrence: None)
  Receive Date: 20050812
  Receipt Date: 20050511
  Transmission Date: 20060218
  Serious: Yes (Hospitalization)
  Sender: FDA-Public Use
  Company Number: US-MERCK-0505USA01797

PATIENT
  Age: 74 Year
  Sex: Female
  Weight: 68 kg

DRUGS (3)
  1. VIOXX [Suspect]
     Indication: PAIN IN EXTREMITY
     Route: 048
     Dates: start: 19991201, end: 20040901
  2. VIOXX [Suspect]
     Indication: ARTHRITIS
     Route: 048
     Dates: start: 19991201, end: 20040901
  3. PREMARIN [Concomitant]
     Indication: MENOPAUSE
     Route: 065
     Dates: start: 19991201, end: 20020801

REACTIONS (6)
  - BLOOD CHOLESTEROL INCREASED [None]
  - CHEST PAIN [None]
  - CONDITION AGGRAVATED [None]
  - HYPERTENSION [None]
  - JOINT SWELLING [None]
  - MYOCARDIAL INFARCTION [None]
